FAERS Safety Report 25207431 (Version 1)
Quarter: 2025Q2

REPORT INFORMATION
  Report Type: Spontaneous
  Country: CN (occurrence: CN)
  Receive Date: 20250417
  Receipt Date: 20250417
  Transmission Date: 20250717
  Serious: Yes (Hospitalization)
  Sender: NOVARTIS
  Company Number: CN-002147023-NVSC2025CN061587

PATIENT
  Age: 49 Year
  Sex: Male
  Weight: 87 kg

DRUGS (1)
  1. CYCLOSPORINE [Suspect]
     Active Substance: CYCLOSPORINE
     Indication: Lymphocytic leukaemia
     Dosage: 125 MG, BID
     Route: 048
     Dates: start: 20240920, end: 20250401

REACTIONS (5)
  - Anaemia [Recovering/Resolving]
  - Full blood count decreased [Unknown]
  - Diarrhoea [Unknown]
  - Asthenia [Recovering/Resolving]
  - Dizziness [Recovering/Resolving]

NARRATIVE: CASE EVENT DATE: 20250401
